FAERS Safety Report 7301438-5 (Version None)
Quarter: 2011Q1

REPORT INFORMATION
  Report Type: 
  Country: None (occurrence: None)
  Receive Date: 20110113
  Receipt Date: 20101013
  Transmission Date: 20110831
  Serious: No
  Sender: FDA-Public Use
  Company Number: US-001341

PATIENT
  Sex: Male
  Weight: 61.2356 kg

DRUGS (3)
  1. FLONASE [Concomitant]
  2. KUVAN [Suspect]
     Indication: PHENYLKETONURIA
     Dosage: 1200 MG QD ORAL, 1200 MG QD ORAL
     Route: 048
     Dates: start: 20090101, end: 20100901
  3. KUVAN [Suspect]
     Indication: PHENYLKETONURIA
     Dosage: 1200 MG QD ORAL, 1200 MG QD ORAL
     Route: 048
     Dates: start: 20101001

REACTIONS (4)
  - GASTROENTERITIS VIRAL [None]
  - COUGH [None]
  - UPPER RESPIRATORY TRACT INFECTION [None]
  - INFLUENZA [None]
